FAERS Safety Report 22362294 (Version 1)
Quarter: 2023Q2

REPORT INFORMATION
  Report Type: Spontaneous
  Country: IT (occurrence: IT)
  Receive Date: 20230524
  Receipt Date: 20230524
  Transmission Date: 20230721
  Serious: Yes (Hospitalization, Other)
  Sender: FDA-Public Use
  Company Number: None

PATIENT
  Age: 34 Year
  Sex: Male

DRUGS (2)
  1. LORAZEPAM [Suspect]
     Active Substance: LORAZEPAM
     Dosage: 7 MG
     Route: 048
     Dates: start: 20230516, end: 20230516
  2. EN [Suspect]
     Active Substance: DELORAZEPAM
     Dosage: 20 MG
     Route: 048
     Dates: start: 20230516, end: 20230516

REACTIONS (4)
  - Sopor [Recovering/Resolving]
  - Confusional state [Recovering/Resolving]
  - Drug abuse [Recovering/Resolving]
  - Intentional self-injury [Unknown]

NARRATIVE: CASE EVENT DATE: 20230516
